FAERS Safety Report 16752708 (Version 1)
Quarter: 2019Q3

REPORT INFORMATION
  Report Type: Report from Study
  Country: None (occurrence: BR)
  Receive Date: 20190828
  Receipt Date: 20190828
  Transmission Date: 20191005
  Serious: Yes (Other)
  Sender: FDA-Public Use
  Company Number: BR-ABBVIE-19K-020-2904422-00

PATIENT
  Age: 57 Year
  Sex: Male
  Weight: 83 kg

DRUGS (3)
  1. HUMIRA [Suspect]
     Active Substance: ADALIMUMAB
     Indication: RHEUMATOID ARTHRITIS
     Route: 058
     Dates: start: 20120101
  2. METHOTREXATE. [Concomitant]
     Active Substance: METHOTREXATE
     Indication: PRODUCT USED FOR UNKNOWN INDICATION
  3. ARAVA [Suspect]
     Active Substance: LEFLUNOMIDE
     Indication: PRODUCT USED FOR UNKNOWN INDICATION
     Route: 065

REACTIONS (10)
  - Diabetic eye disease [Unknown]
  - Peripheral coldness [Unknown]
  - Eating disorder [Unknown]
  - Poor peripheral circulation [Unknown]
  - Visual impairment [Unknown]
  - Pain [Recovered/Resolved]
  - Umbilical hernia [Recovering/Resolving]
  - Hypertension [Unknown]
  - Joint swelling [Unknown]
  - Inguinal hernia [Recovering/Resolving]

NARRATIVE: CASE EVENT DATE: 20190825
